FAERS Safety Report 15621522 (Version 2)
Quarter: 2019Q4

REPORT INFORMATION
  Report Type: Report from Study
  Country: US (occurrence: US)
  Receive Date: 20181115
  Receipt Date: 20191011
  Transmission Date: 20200122
  Serious: Yes (Other)
  Sender: FDA-Public Use
  Company Number: US-PFIZER INC-2018465519

PATIENT

DRUGS (2)
  1. SILDENAFIL CITRATE. [Suspect]
     Active Substance: SILDENAFIL CITRATE
     Indication: PULMONARY HYPERTENSION
  2. SILDENAFIL CITRATE. [Suspect]
     Active Substance: SILDENAFIL CITRATE
     Indication: BRONCHOPULMONARY DYSPLASIA
     Dosage: 1 MG/KG, 3X/DAY (MAINTENANCE DOSING RANGE, ENTERALLY, EVERY 8 HOURS)
     Route: 048

REACTIONS (2)
  - Bronchospasm [Unknown]
  - Obstructive airways disorder [Unknown]
